FAERS Safety Report 10946141 (Version 8)
Quarter: 2017Q1

REPORT INFORMATION
  Report Type: Spontaneous
  Country: US (occurrence: US)
  Receive Date: 20150323
  Receipt Date: 20170307
  Transmission Date: 20170428
  Serious: Yes (Hospitalization, Disabling, Other)
  Sender: FDA-Public Use
  Company Number: US-009507513-1503USA009652

PATIENT
  Sex: Female

DRUGS (10)
  1. ALENDRONATE SODIUM. [Suspect]
     Active Substance: ALENDRONATE SODIUM
     Dosage: 70 MG, UNK
     Route: 048
     Dates: start: 201010, end: 201102
  2. ALENDRONATE SODIUM. [Suspect]
     Active Substance: ALENDRONATE SODIUM
     Dosage: 70 MG, UNK
     Dates: start: 201007, end: 201010
  3. FORTEO [Suspect]
     Active Substance: TERIPARATIDE
     Indication: OSTEOPOROSIS
     Dosage: 20 MICROGRAM, INJECTION QD
     Dates: start: 2013
  4. ALENDRONATE SODIUM. [Suspect]
     Active Substance: ALENDRONATE SODIUM
     Indication: OSTEOPOROSIS
     Dosage: 70 MG, QW
     Route: 048
     Dates: start: 201103, end: 201303
  5. ALENDRONATE SODIUM. [Suspect]
     Active Substance: ALENDRONATE SODIUM
     Dosage: 70 MG, UNK
     Route: 048
     Dates: start: 201109, end: 2011
  6. ACTONEL [Suspect]
     Active Substance: RISEDRONATE SODIUM
     Indication: OSTEOPOROSIS
     Dosage: 5 MG, QD
     Route: 048
     Dates: start: 2003, end: 200806
  7. FOSAMAX [Suspect]
     Active Substance: ALENDRONATE SODIUM
     Indication: OSTEOPOROSIS
     Dosage: 70 MG, QW
     Route: 048
  8. ALENDRONATE SODIUM. [Suspect]
     Active Substance: ALENDRONATE SODIUM
     Indication: OSTEOPOROSIS
     Dosage: 70 MG, UNKNOWN
     Route: 048
     Dates: start: 200802, end: 200809
  9. ALENDRONATE SODIUM. [Suspect]
     Active Substance: ALENDRONATE SODIUM
     Dosage: 70 MG, UNK
     Route: 048
     Dates: start: 201103, end: 201108
  10. ALENDRONATE SODIUM. [Suspect]
     Active Substance: ALENDRONATE SODIUM
     Dosage: 70 MG, QW
     Route: 048
     Dates: start: 200807, end: 201307

REACTIONS (44)
  - Bursitis [Unknown]
  - Back pain [Not Recovered/Not Resolved]
  - Insomnia [Unknown]
  - Hydronephrosis [Unknown]
  - Acute kidney injury [Recovered/Resolved]
  - Low turnover osteopathy [Not Recovered/Not Resolved]
  - Femur fracture [Recovering/Resolving]
  - Gastrooesophageal reflux disease [Unknown]
  - Perirenal haematoma [Unknown]
  - Metastases to bladder [Unknown]
  - Comminuted fracture [Unknown]
  - Limb injury [Not Recovered/Not Resolved]
  - Sjogren^s syndrome [Unknown]
  - Atrioventricular block second degree [Recovered/Resolved]
  - Seizure [Unknown]
  - Hypothyroidism [Unknown]
  - Diabetes mellitus [Unknown]
  - Pelvic pain [Unknown]
  - Post-traumatic stress disorder [Unknown]
  - Musculoskeletal pain [Unknown]
  - Spinal osteoarthritis [Unknown]
  - Acute kidney injury [Recovering/Resolving]
  - Retroperitoneal haemorrhage [Unknown]
  - Urinary tract infection [Unknown]
  - Temporomandibular joint syndrome [Unknown]
  - Migraine [Unknown]
  - Electrolyte imbalance [Recovering/Resolving]
  - Chest injury [Unknown]
  - Essential hypertension [Unknown]
  - Depression [Unknown]
  - Cataract [Unknown]
  - Ovarian cancer [Unknown]
  - Fibromyalgia [Unknown]
  - Tinnitus [Unknown]
  - Gastritis [Unknown]
  - Haemorrhagic anaemia [Unknown]
  - Radius fracture [Unknown]
  - Dementia [Recovering/Resolving]
  - Back injury [Not Recovered/Not Resolved]
  - Hyperlipidaemia [Unknown]
  - Lethargy [Unknown]
  - Chronic fatigue syndrome [Not Recovered/Not Resolved]
  - Arthritis [Unknown]
  - Glaucoma [Unknown]

NARRATIVE: CASE EVENT DATE: 2003
